FAERS Safety Report 23799720 (Version 1)
Quarter: 2024Q2

REPORT INFORMATION
  Report Type: Spontaneous
  Country: US (occurrence: None)
  Receive Date: 20240429
  Receipt Date: 20240429
  Transmission Date: 20240716
  Serious: Yes (Disabling)
  Sender: FDA-Public Use
  Company Number: None

PATIENT
  Age: 72 Year
  Sex: Female
  Weight: 73.8 kg

DRUGS (5)
  1. OZEMPIC [Suspect]
     Active Substance: SEMAGLUTIDE
     Indication: Diabetes mellitus
     Dosage: OTHER QUANTITY : 1 INJECTION(S)?OTHER FREQUENCY : ONCE WEEKLY;
     Route: 058
  2. ASPIRIN [Concomitant]
     Active Substance: ASPIRIN
  3. FAMOTIDINE [Concomitant]
     Active Substance: FAMOTIDINE
  4. HYDROXYZINE [Concomitant]
     Active Substance: HYDROXYZINE HYDROCHLORIDE
  5. VITAMINS [Concomitant]
     Active Substance: VITAMINS

REACTIONS (11)
  - Headache [None]
  - Hyperhidrosis [None]
  - Nausea [None]
  - Constipation [None]
  - Pain [None]
  - Rash [None]
  - Pruritus [None]
  - Dizziness [None]
  - Syncope [None]
  - Injection site rash [None]
  - Therapy change [None]
